FAERS Safety Report 13210036 (Version 3)
Quarter: 2017Q1

REPORT INFORMATION
  Report Type: Report from Study
  Country: US (occurrence: US)
  Receive Date: 20170209
  Receipt Date: 20170303
  Transmission Date: 20170428
  Serious: Yes (Hospitalization)
  Sender: FDA-Public Use
  Company Number: US-ACTELION-A-US2017-149664

PATIENT
  Age: 55 Year
  Sex: Female
  Weight: 47.62 kg

DRUGS (8)
  1. ZOLPIDEM [Concomitant]
     Active Substance: ZOLPIDEM\ZOLPIDEM TARTRATE
  2. SPIRONOLACTONE. [Concomitant]
     Active Substance: SPIRONOLACTONE
  3. VELETRI [Suspect]
     Active Substance: EPOPROSTENOL
     Indication: PULMONARY ARTERIAL HYPERTENSION
     Dosage: 93.5 NG/KG, PER MIN
     Route: 042
     Dates: start: 20160829
  4. LORAZEPAM. [Concomitant]
     Active Substance: LORAZEPAM
  5. ZOCOR [Concomitant]
     Active Substance: SIMVASTATIN
  6. SEREVENT DISKUS [Concomitant]
     Active Substance: SALMETEROL XINAFOATE
  7. TRACLEER [Suspect]
     Active Substance: BOSENTAN
     Indication: PULMONARY ARTERIAL HYPERTENSION
     Dosage: 125 MG, BID
     Route: 048
     Dates: start: 20140716
  8. SILDENAFIL. [Concomitant]
     Active Substance: SILDENAFIL

REACTIONS (2)
  - Bronchitis [Recovered/Resolved]
  - Pneumonia [Recovered/Resolved]
